FAERS Safety Report 23789360 (Version 2)
Quarter: 2024Q2

REPORT INFORMATION
  Report Type: Spontaneous
  Country: SK (occurrence: SK)
  Receive Date: 20240426
  Receipt Date: 20240429
  Transmission Date: 20240716
  Serious: Yes (Death, Hospitalization, Other)
  Sender: FDA-Public Use
  Company Number: SK-002147023-NVSC2024SK084972

PATIENT

DRUGS (11)
  1. RUXOLITINIB [Suspect]
     Active Substance: RUXOLITINIB
     Indication: Polycythaemia vera
     Dosage: 10 MG, BID
     Route: 048
     Dates: start: 2020
  2. RUXOLITINIB [Suspect]
     Active Substance: RUXOLITINIB
     Dosage: 5 MG, BID
     Route: 048
     Dates: start: 20201112, end: 20201126
  3. RUXOLITINIB [Suspect]
     Active Substance: RUXOLITINIB
     Dosage: 10 MG, BID
     Route: 048
     Dates: start: 20201126
  4. LEVOTHYROXINE [Concomitant]
     Active Substance: LEVOTHYROXINE\LEVOTHYROXINE SODIUM
     Indication: Product used for unknown indication
     Dosage: UNK
     Route: 065
  5. H2 BLOCKER [CIMETIDINE HYDROCHLORIDE] [Concomitant]
     Indication: Product used for unknown indication
     Dosage: UNK
     Route: 065
  6. ASPIRIN [Concomitant]
     Active Substance: ASPIRIN
     Indication: Product used for unknown indication
     Dosage: 100 MG
     Route: 048
     Dates: start: 20201112
  7. ALLOPURINOL [Concomitant]
     Active Substance: ALLOPURINOL
     Indication: Product used for unknown indication
     Dosage: UNK
     Route: 065
  8. HYDROXYUREA [Concomitant]
     Active Substance: HYDROXYUREA
     Indication: Product used for unknown indication
     Dosage: UNK (4 BY 1 CPS / WEEK)
     Route: 065
     Dates: start: 201903, end: 201910
  9. HYDROXYUREA [Concomitant]
     Active Substance: HYDROXYUREA
     Dosage: 1 DOSAGE FORM, Q4W (4 TIMES IN A  WEEK 1 CPS)
     Route: 048
  10. HYDROXYUREA [Concomitant]
     Active Substance: HYDROXYUREA
     Dosage: UNK (1ST WEEK 2CPS IN A WEEK)
     Route: 048
     Dates: start: 2020
  11. HYDROXYUREA [Concomitant]
     Active Substance: HYDROXYUREA
     Dosage: UNK  (2ND WEEK 1CPS IN A  WEEK)
     Route: 048
     Dates: start: 2020

REACTIONS (3)
  - Cardiac failure [Fatal]
  - COVID-19 [Not Recovered/Not Resolved]
  - Atrial fibrillation [Not Recovered/Not Resolved]

NARRATIVE: CASE EVENT DATE: 20201218
